FAERS Safety Report 7024922-0 (Version None)
Quarter: 2010Q4

REPORT INFORMATION
  Report Type: 
  Country: None (occurrence: None)
  Receive Date: 20101001
  Receipt Date: 20100926
  Transmission Date: 20110411
  Serious: Yes (Other)
  Sender: FDA-Public Use
  Company Number: US-PFIZER INC-2010109166

PATIENT
  Sex: Female
  Weight: 72 kg

DRUGS (15)
  1. CHANTIX [Suspect]
     Indication: SMOKING CESSATION THERAPY
     Dosage: 0.5 MG, DAILY
     Route: 048
     Dates: start: 20100827, end: 20100924
  2. WELLBUTRIN [Concomitant]
     Indication: DEPRESSION
     Dosage: UNK
  3. SERTRALINE [Concomitant]
     Indication: DEPRESSION
     Dosage: UNK
  4. SERTRALINE [Concomitant]
     Indication: ANXIETY
  5. LOXAPINE [Concomitant]
     Indication: DISSOCIATIVE IDENTITY DISORDER
     Dosage: UNK
  6. LOXAPINE [Concomitant]
     Indication: INTERVERTEBRAL DISC DEGENERATION
  7. CLONAZEPAM [Concomitant]
     Indication: ANXIETY
     Dosage: UNK
  8. PRAVASTATIN [Concomitant]
     Indication: BLOOD CHOLESTEROL INCREASED
     Dosage: UNK
  9. HYDROCODONE [Concomitant]
     Indication: INTERVERTEBRAL DISC DEGENERATION
     Dosage: UNK
  10. METHADONE [Concomitant]
     Indication: INTERVERTEBRAL DISC DEGENERATION
     Dosage: UNK
  11. NAPROXEN [Concomitant]
     Indication: PAIN
     Dosage: UNK
  12. NAPROXEN [Concomitant]
     Indication: INTERVERTEBRAL DISC DEGENERATION
  13. TIZANIDINE [Concomitant]
     Indication: PAIN
     Dosage: UNK
  14. TIZANIDINE [Concomitant]
     Indication: INTERVERTEBRAL DISC DEGENERATION
  15. PAROXETINE [Concomitant]
     Indication: DISSOCIATIVE IDENTITY DISORDER
     Dosage: UNK

REACTIONS (3)
  - ANXIETY [None]
  - DISTURBANCE IN ATTENTION [None]
  - MEMORY IMPAIRMENT [None]
